FAERS Safety Report 4455626-6 (Version None)
Quarter: 2004Q3

REPORT INFORMATION
  Report Type: 
  Country: None (occurrence: None)
  Receive Date: 20040920
  Receipt Date: 20040920
  Transmission Date: 20050211
  Serious: Yes (Hospitalization)
  Sender: FDA-Public Use
  Company Number: None

PATIENT
  Age: 59 Year
  Sex: Male
  Weight: 100 kg

DRUGS (9)
  1. DARBEPOETIN ALFA [Suspect]
     Indication: ANAEMIA
     Dosage: 9 MCG/KG (900 MCG SC Q WEDNESDAY)
     Route: 058
     Dates: start: 20040609, end: 20040825
  2. DARBEPOETIN ALFA [Suspect]
     Indication: MYELODYSPLASTIC SYNDROME
     Dosage: 9 MCG/KG (900 MCG SC Q WEDNESDAY)
     Route: 058
     Dates: start: 20040609, end: 20040825
  3. NEUPOGEN [Suspect]
     Indication: ANAEMIA
     Dosage: 2.5 MG/KG (250MGC SC Q WEDNESDAY + SATURDAY
     Route: 058
     Dates: start: 20040721, end: 20040828
  4. NEUPOGEN [Suspect]
     Indication: MYELODYSPLASTIC SYNDROME
     Dosage: 2.5 MG/KG (250MGC SC Q WEDNESDAY + SATURDAY
     Route: 058
     Dates: start: 20040721, end: 20040828
  5. PREDNISONE [Concomitant]
  6. EFFEXOR [Concomitant]
  7. DICLOFENAC [Concomitant]
  8. ANDROGEN [Concomitant]
  9. DILTIAZEM [Concomitant]

REACTIONS (4)
  - BALANCE DISORDER [None]
  - DRUG INEFFECTIVE [None]
  - FALL [None]
  - SUBDURAL HAEMATOMA [None]
